FAERS Safety Report 5545419-0 (Version None)
Quarter: 2007Q4

REPORT INFORMATION
  Report Type: 
  Country: None (occurrence: None)
  Receive Date: 20071126
  Receipt Date: 20070323
  Transmission Date: 20080405
  Serious: Yes (Other)
  Sender: FDA-Public Use
  Company Number: 2007BH003134

PATIENT
  Age: 55 Year
  Sex: Male

DRUGS (2)
  1. DIANEAL [Suspect]
     Indication: DIABETIC END STAGE RENAL DISEASE
     Dosage: 6 L; IP
     Route: 033
  2. DIANEAL [Suspect]
     Indication: DIABETIC END STAGE RENAL DISEASE
     Dosage: 2 L; IP
     Route: 033

REACTIONS (1)
  - PERITONITIS [None]
